FAERS Safety Report 7074384-2 (Version None)
Quarter: 2010Q4

REPORT INFORMATION
  Report Type: 
  Country: None (occurrence: None)
  Receive Date: 20101029
  Receipt Date: 20101028
  Transmission Date: 20110411
  Serious: Yes (Death)
  Sender: FDA-Public Use
  Company Number: GB-ABBOTT-10P-167-0681791-00

PATIENT
  Sex: Female
  Weight: 94 kg

DRUGS (1)
  1. HUMIRA [Suspect]
     Indication: RHEUMATOID ARTHRITIS
     Route: 058
     Dates: start: 20030908, end: 20050515

REACTIONS (1)
  - INTESTINAL ISCHAEMIA [None]
